FAERS Safety Report 9524736 (Version 1)
Quarter: 2013Q3

REPORT INFORMATION
  Report Type: Spontaneous
  Country: AT (occurrence: AT)
  Receive Date: 20130916
  Receipt Date: 20130916
  Transmission Date: 20140515
  Serious: Yes (Other)
  Sender: FDA-Public Use
  Company Number: PHHY2013AT101837

PATIENT
  Age: 58 Year
  Sex: Female

DRUGS (3)
  1. EXFORGE HCT [Suspect]
     Dosage: UNK UKN, UNK
  2. TRYPTINE [Concomitant]
     Indication: MIGRAINE
     Dosage: UNK UKN, UNK
  3. HORMONES [Concomitant]
     Dosage: UNK UKN, UNK

REACTIONS (1)
  - Cataract [Unknown]
